FAERS Safety Report 5135266-6 (Version None)
Quarter: 2006Q4

REPORT INFORMATION
  Report Type: 
  Country: None (occurrence: None)
  Receive Date: 20061026
  Receipt Date: 20051107
  Transmission Date: 20070319
  Serious: Yes (Other)
  Sender: FDA-Public Use
  Company Number: US-JNJFOC-20051101906

PATIENT
  Sex: Female
  Weight: 63.5 kg

DRUGS (3)
  1. LEVAQUIN [Suspect]
     Route: 048
  2. LEVAQUIN [Suspect]
     Route: 048
  3. LEVAQUIN [Suspect]
     Indication: PHARYNGITIS STREPTOCOCCAL
     Route: 048

REACTIONS (1)
  - AGEUSIA [None]
